FAERS Safety Report 4815443-1 (Version None)
Quarter: 2005Q4

REPORT INFORMATION
  Report Type: 
  Country: None (occurrence: None)
  Receive Date: 20051027
  Receipt Date: 20051027
  Transmission Date: 20060501
  Serious: Yes (Death)
  Sender: FDA-Public Use
  Company Number: None

PATIENT
  Sex: Female
  Weight: 54.4316 kg

DRUGS (1)
  1. DURAGESIC-25 [Suspect]
     Indication: RESTLESSNESS
     Dosage: 1 PATCH ON CHEST
     Dates: start: 20021116

REACTIONS (1)
  - DEATH [None]
